FAERS Safety Report 10067842 (Version 1)
Quarter: 2014Q2

REPORT INFORMATION
  Report Type: Spontaneous
  Country: US (occurrence: None)
  Receive Date: 20140401
  Receipt Date: 20140401
  Transmission Date: 20141212
  Serious: Yes (Hospitalization)
  Sender: FDA-Public Use
  Company Number: PHEH2013US003060

PATIENT
  Age: 91 Year
  Sex: Male

DRUGS (3)
  1. TASIGNA [Suspect]
     Indication: GASTRIC CANCER
     Route: 048
     Dates: start: 20121208, end: 20130205
  2. MAGNESIUM [Concomitant]
  3. FOLIC ACID (FOLIC ACID) [Concomitant]

REACTIONS (3)
  - Anaemia [None]
  - Pruritus [None]
  - Acne [None]
